FAERS Safety Report 5578105-1 (Version None)
Quarter: 2007Q4

REPORT INFORMATION
  Report Type: 
  Country: None (occurrence: None)
  Receive Date: 20071227
  Receipt Date: 20071211
  Transmission Date: 20080405
  Serious: Yes (Life-Threatening, Other)
  Sender: FDA-Public Use
  Company Number: 65572

PATIENT
  Sex: Male

DRUGS (1)
  1. MAX STRENGTH COLD + FU RELIEF [Suspect]
     Dosage: 6 CAPSULES/1 TIME/ORAL
     Route: 048
     Dates: start: 20070701, end: 20070701

REACTIONS (1)
  - CEREBRAL HAEMORRHAGE [None]
